FAERS Safety Report 8620231-4 (Version None)
Quarter: 2012Q3

REPORT INFORMATION
  Report Type: 
  Country: None (occurrence: None)
  Receive Date: 20120824
  Receipt Date: 20120817
  Transmission Date: 20120928
  Serious: Yes (Hospitalization)
  Sender: FDA-Public Use
  Company Number: US-ABBOTT-12P-163-0970376-00

PATIENT
  Sex: Male
  Weight: 115.77 kg

DRUGS (3)
  1. HUMIRA [Suspect]
     Dates: start: 20110101
  2. HUMIRA [Suspect]
     Indication: PSORIASIS
     Dates: start: 20110101, end: 20110101
  3. HUMIRA [Suspect]
     Indication: PSORIASIS
     Dates: start: 20070101, end: 20081201

REACTIONS (4)
  - GAIT DISTURBANCE [None]
  - CHONDROPATHY [None]
  - ARTHRALGIA [None]
  - OSTEOARTHRITIS [None]
